FAERS Safety Report 12327527 (Version 1)
Quarter: 2016Q2

REPORT INFORMATION
  Report Type: Spontaneous
  Country: US (occurrence: US)
  Receive Date: 20160503
  Receipt Date: 20160503
  Transmission Date: 20160815
  Serious: No
  Sender: FDA-Public Use
  Company Number: US-GLAXOSMITHKLINE-US2016054162

PATIENT
  Sex: Female

DRUGS (2)
  1. ADVAIR DISKUS [Suspect]
     Active Substance: FLUTICASONE PROPIONATE\SALMETEROL XINAFOATE
     Indication: CHRONIC OBSTRUCTIVE PULMONARY DISEASE
     Dosage: UNK
     Route: 055
     Dates: start: 2011
  2. DALIRESP [Concomitant]
     Active Substance: ROFLUMILAST
     Dosage: UNK
     Dates: start: 2011

REACTIONS (6)
  - Chest discomfort [Recovered/Resolved]
  - Wheezing [Recovered/Resolved]
  - Intentional product use issue [Not Recovered/Not Resolved]
  - Chronic obstructive pulmonary disease [Recovered/Resolved]
  - Treatment noncompliance [Not Recovered/Not Resolved]
  - Inability to afford medication [Not Recovered/Not Resolved]
